FAERS Safety Report 18484568 (Version 4)
Quarter: 2020Q4

REPORT INFORMATION
  Report Type: Spontaneous
  Country: CH (occurrence: CH)
  Receive Date: 20201110
  Receipt Date: 20201203
  Transmission Date: 20210114
  Serious: Yes (Hospitalization, Other)
  Sender: FDA-Public Use
  Company Number: CH-ABBVIE-20K-151-3644480-00

PATIENT
  Age: 41 Year
  Sex: Female
  Weight: 95 kg

DRUGS (2)
  1. SKYRIZI [Suspect]
     Active Substance: RISANKIZUMAB-RZAA
     Indication: PSORIASIS
     Dosage: STOPPED AFTER SECOND DOSE
     Route: 058
     Dates: start: 20191101, end: 20191129
  2. PANTOPRAZOL [Concomitant]
     Active Substance: PANTOPRAZOLE SODIUM
     Indication: PRODUCT USED FOR UNKNOWN INDICATION
     Dosage: AT 8:00.

REACTIONS (10)
  - Influenza [Recovered/Resolved]
  - Psoriasis [Unknown]
  - Myocarditis [Recovered/Resolved]
  - Chest pain [Recovered/Resolved]
  - Productive cough [Unknown]
  - Myalgia [Unknown]
  - Chest pain [Recovered/Resolved]
  - Fatigue [Recovering/Resolving]
  - Pyrexia [Recovered/Resolved]
  - Claustrophobia [Unknown]

NARRATIVE: CASE EVENT DATE: 201911
